FAERS Safety Report 7024484-8 (Version None)
Quarter: 2010Q4

REPORT INFORMATION
  Report Type: 
  Country: None (occurrence: None)
  Receive Date: 20101001
  Receipt Date: 20100929
  Transmission Date: 20110411
  Serious: Yes (Hospitalization)
  Sender: FDA-Public Use
  Company Number: A0836041A

PATIENT
  Age: 53 Year
  Sex: Female
  Weight: 113.6 kg

DRUGS (5)
  1. AVANDIA [Suspect]
     Dosage: 8MG PER DAY
     Route: 048
     Dates: start: 20000101
  2. DIOVAN [Concomitant]
  3. GLUCOVANCE [Concomitant]
  4. ZETIA [Concomitant]
  5. ZYPREXA [Concomitant]

REACTIONS (8)
  - ARTHRITIS [None]
  - BIPOLAR DISORDER [None]
  - CHEST PAIN [None]
  - FOOT FRACTURE [None]
  - HUMERUS FRACTURE [None]
  - MULTIPLE FRACTURES [None]
  - PAIN [None]
  - PANIC ATTACK [None]
